FAERS Safety Report 6412813-5 (Version None)
Quarter: 2009Q4

REPORT INFORMATION
  Report Type: 
  Country: None (occurrence: None)
  Receive Date: 20091023
  Receipt Date: 20091012
  Transmission Date: 20100525
  Serious: Yes (Other)
  Sender: FDA-Public Use
  Company Number: US-ELI_LILLY_AND_COMPANY-US200903003503

PATIENT
  Sex: Female

DRUGS (3)
  1. ZYPREXA [Suspect]
     Indication: SCHIZOPHRENIA
     Dosage: 5 MG, 2/D
     Dates: start: 19990101
  2. ZYPREXA [Suspect]
  3. INDERAL [Concomitant]
     Indication: DIABETES MELLITUS
     Dosage: 15 MG, UNK

REACTIONS (4)
  - ADVERSE EVENT [None]
  - BLOOD GLUCOSE INCREASED [None]
  - DIABETES MELLITUS [None]
  - GLAUCOMA [None]
